FAERS Safety Report 5012112-2 (Version None)
Quarter: 2006Q2

REPORT INFORMATION
  Report Type: 
  Country: None (occurrence: None)
  Receive Date: 20060525
  Receipt Date: 20060525
  Transmission Date: 20061013
  Serious: Yes (Other)
  Sender: FDA-Public Use
  Company Number: None

PATIENT
  Age: 62 Year
  Sex: Female
  Weight: 70.3075 kg

DRUGS (6)
  1. LYRICA [Suspect]
     Indication: HERPES ZOSTER
     Dosage: 50 MG QHS PO    Q12
     Route: 048
     Dates: start: 20060501, end: 20060502
  2. FOSAMAX [Concomitant]
  3. QUESTRAN [Concomitant]
  4. SINEMET [Concomitant]
  5. ZOLOFT [Concomitant]
  6. MOBIC [Concomitant]

REACTIONS (1)
  - SYNCOPE [None]
